FAERS Safety Report 6572912-4 (Version None)
Quarter: 2010Q1

REPORT INFORMATION
  Report Type: 
  Country: None (occurrence: None)
  Receive Date: 20100208
  Receipt Date: 20100204
  Transmission Date: 20100710
  Serious: Yes (Other)
  Sender: FDA-Public Use
  Company Number: US-ASTRAZENECA-2006UW22874

PATIENT
  Sex: Male
  Weight: 95.3 kg

DRUGS (5)
  1. SEROQUEL [Suspect]
     Indication: SCHIZOPHRENIA
     Route: 048
     Dates: start: 20030101
  2. SEROQUEL [Suspect]
     Indication: DEPRESSION
     Route: 048
     Dates: start: 20030101
  3. SEROQUEL [Suspect]
     Dosage: VARIOUS DOSAGES
     Route: 048
     Dates: start: 20030401
  4. SEROQUEL [Suspect]
     Dosage: VARIOUS DOSAGES
     Route: 048
     Dates: start: 20030401
  5. TRAZODONE [Concomitant]
     Dates: start: 20070101

REACTIONS (7)
  - BLOOD CHOLESTEROL INCREASED [None]
  - CARDIAC FAILURE [None]
  - DIABETES MELLITUS [None]
  - HYPERLIPIDAEMIA [None]
  - HYPERTENSION [None]
  - OBESITY [None]
  - TYPE 2 DIABETES MELLITUS [None]
